FAERS Safety Report 5521476-2 (Version None)
Quarter: 2007Q4

REPORT INFORMATION
  Report Type: 
  Country: None (occurrence: None)
  Receive Date: 20071119
  Receipt Date: 20071108
  Transmission Date: 20080405
  Serious: Yes (Hospitalization, Other)
  Sender: FDA-Public Use
  Company Number: US-PFIZER INC-2007093863

PATIENT
  Sex: Female

DRUGS (1)
  1. ZITHROMAX [Suspect]
     Indication: DENTAL CARE
     Dates: start: 20070701, end: 20070701

REACTIONS (2)
  - CARDIAC ABLATION [None]
  - TACHYCARDIA [None]
